FAERS Safety Report 25761787 (Version 1)
Quarter: 2025Q3

REPORT INFORMATION
  Report Type: Spontaneous
  Country: US (occurrence: None)
  Receive Date: 20250904
  Receipt Date: 20250904
  Transmission Date: 20251020
  Serious: Yes (Death)
  Sender: FDA-CTU
  Company Number: None

PATIENT
  Age: 40 Year
  Sex: Female

DRUGS (3)
  1. ZEPBOUND [Suspect]
     Active Substance: TIRZEPATIDE
     Indication: Weight decreased
     Route: 050
     Dates: start: 20250624, end: 20250803
  2. IRON [Concomitant]
     Active Substance: IRON
  3. ESCITALOPRAM [Concomitant]
     Active Substance: ESCITALOPRAM OXALATE

REACTIONS (6)
  - Dizziness [None]
  - Dizziness [None]
  - Loss of consciousness [None]
  - Fall [None]
  - Pulmonary embolism [None]
  - Cardiac arrest [None]

NARRATIVE: CASE EVENT DATE: 20250810
